FAERS Safety Report 9586007 (Version 7)
Quarter: 2014Q1

REPORT INFORMATION
  Report Type: Spontaneous
  Country: US (occurrence: US)
  Receive Date: 20131003
  Receipt Date: 20140123
  Transmission Date: 20141002
  Serious: No
  Sender: FDA-Public Use
  Company Number: US-PFIZER INC-2013277475

PATIENT
  Age: 62 Year
  Sex: Male

DRUGS (17)
  1. CELEBREX [Suspect]
     Dosage: 200 MG, 2X/DAY
     Route: 048
  2. LYRICA [Suspect]
     Dosage: 300 MG, 2X/DAY
     Route: 048
  3. BELLADONNA ALKALOID-PHENO [Concomitant]
     Dosage: 16.2-60 MG, DAILY
  4. VITAMIN B COMPLEX [Concomitant]
     Dosage: 1 DF, DAILY
     Route: 048
  5. CALCIUM + D [Concomitant]
     Dosage: 2 TABLETS (600MG -200UNIT) DAILY
     Route: 048
  6. ESCITALOPRAM OXALATE [Concomitant]
     Dosage: 10MG (1 TABLET) DAILY
     Route: 048
  7. FLUTICASONE PROPIONATE [Concomitant]
     Dosage: 50MCG /ACT SUSPENSION, 2 PUFFS (NASAL) DAILY
     Route: 045
  8. AMOXICILLIN [Concomitant]
     Dosage: 1500MG (3 CAPSULES) DAILY
     Route: 048
  9. TAMSULOSIN HYDROCHLORIDE [Concomitant]
     Dosage: 0.4MG (1 CAPSULE) DAILY
     Route: 048
  10. PANTOPRAZOLE SODIUM [Concomitant]
     Dosage: 40MG (1 TABLET) DAILY
     Route: 048
  11. TEMAZEPAM [Concomitant]
     Dosage: 30MG (1 CAPSULE) ONCE DAILY AT BEDTIME
     Route: 048
  12. MIRTAZAPINE [Concomitant]
     Dosage: 45MG (1 TABLET) ONCE DAILY AT BEDTIME
     Route: 048
  13. TRAZODONE HYDROCHLORIDE [Concomitant]
     Dosage: 150MG (1 TABLET) ONCE DAILY AT BEDTIME
     Route: 048
  14. MOMETASONE FUROATE [Concomitant]
     Dosage: 0.1% OINTMENT, APPLY EXTERNALLY AS NEEDED
     Route: 061
  15. PENCICLOVIR [Concomitant]
     Dosage: AT UNKNOWN DOSE APPLY EXTERNALLY AS NEEDED
     Route: 061
  16. DONNATAL [Concomitant]
     Indication: ABDOMINAL RIGIDITY
     Dosage: 16.2MG (1 TABLET) AS NEEDED
     Route: 048
  17. FIBER THERAPY [Concomitant]
     Dosage: 500MG, 1 (TABLET) TWO TIMES DAILY
     Route: 048

REACTIONS (8)
  - Intentional drug misuse [Unknown]
  - Intervertebral disc protrusion [Unknown]
  - Fall [Unknown]
  - Neck injury [Unknown]
  - Nerve injury [Unknown]
  - Musculoskeletal disorder [Unknown]
  - Chondropathy [Unknown]
  - Drug withdrawal syndrome [Unknown]
